FAERS Safety Report 12809031 (Version 1)
Quarter: 2016Q4

REPORT INFORMATION
  Report Type: Spontaneous
  Country: US (occurrence: US)
  Receive Date: 20161004
  Receipt Date: 20161004
  Transmission Date: 20170207
  Serious: No
  Sender: FDA-Public Use
  Company Number: US-ACTELION-A-US2016-143111

PATIENT
  Age: 73 Year
  Sex: Male

DRUGS (3)
  1. TRIAMCINOLONE [Concomitant]
     Active Substance: TRIAMCINOLONE
     Dosage: UNK, PRN
  2. VITAMINS [Concomitant]
     Active Substance: VITAMINS
  3. VALCHLOR [Suspect]
     Active Substance: MECHLORETHAMINE
     Indication: MYCOSIS FUNGOIDES
     Dosage: 0.016 %, Q1WEEK
     Route: 061
     Dates: start: 20160923

REACTIONS (2)
  - Pruritus [Recovered/Resolved]
  - Skin discolouration [Unknown]
